FAERS Safety Report 4471737-3 (Version None)
Quarter: 2004Q4

REPORT INFORMATION
  Report Type: 
  Country: None (occurrence: None)
  Receive Date: 20041012
  Receipt Date: 20041008
  Transmission Date: 20050328
  Serious: Yes (Hospitalization, Other)
  Sender: FDA-Public Use
  Company Number: DE-MERCK-0410DEU00281

PATIENT
  Age: 51 Year
  Sex: Female

DRUGS (3)
  1. FLUPIRTINE MALEATE [Concomitant]
     Route: 065
  2. TILIDINE HYDROCHLORIDE AND NALOXONE HYDROCHLORIDE [Concomitant]
     Route: 065
  3. VIOXX [Suspect]
     Indication: BONE PAIN
     Route: 048

REACTIONS (2)
  - CORONARY ARTERY DISEASE [None]
  - MYOCARDIAL INFARCTION [None]
